FAERS Safety Report 23393678 (Version 3)
Quarter: 2024Q3

REPORT INFORMATION
  Report Type: Spontaneous
  Country: US (occurrence: US)
  Receive Date: 20240111
  Receipt Date: 20240821
  Transmission Date: 20241016
  Serious: Yes (Hospitalization)
  Sender: PFIZER
  Company Number: US-PFIZER INC-202400005437

PATIENT
  Age: 5 Year
  Sex: Male
  Weight: 17.7 kg

DRUGS (6)
  1. OXBRYTA [Suspect]
     Active Substance: VOXELOTOR
     Indication: Sickle cell disease
     Dosage: 600 MG, 1X/DAY (300 MG; 2 TABLET FOR ORAL SUSPENSION ONCE DAILY)
     Route: 048
     Dates: start: 20220830
  2. PENICILLIN V POTASSIUM [Concomitant]
     Active Substance: PENICILLIN V POTASSIUM
     Indication: Antibiotic prophylaxis
     Dosage: 250 MG, 2X/DAY
  3. PULMICORT TURBUHALER [Concomitant]
     Active Substance: BUDESONIDE
     Indication: Asthma
     Dosage: 500 UG (2ML), 2X/DAY
  4. SINGULAIR [Concomitant]
     Active Substance: MONTELUKAST SODIUM
     Indication: Asthma
     Dosage: 4 MG [0.0837 ML SOLN. (2.5 ML)], EVERY 4 HRS AS NEEDED ASTHMA
  5. PROVENTIL [Concomitant]
     Active Substance: ALBUTEROL
     Indication: Asthma
     Dosage: EVERY 4 HRS AS NEEDED
  6. VITAMINS [Concomitant]
     Active Substance: VITAMINS
     Indication: Wheezing
     Dosage: 1 TAB DAILY

REACTIONS (1)
  - Acute chest syndrome [Recovered/Resolved]

NARRATIVE: CASE EVENT DATE: 20231222
